FAERS Safety Report 12837961 (Version 1)
Quarter: 2016Q4

REPORT INFORMATION
  Report Type: Spontaneous
  Country: JP (occurrence: JP)
  Receive Date: 20161012
  Receipt Date: 20161012
  Transmission Date: 20170207
  Serious: Yes (Other)
  Sender: FDA-Public Use
  Company Number: JP-TEVA-699904ACC

PATIENT
  Age: 72 Year
  Sex: Male

DRUGS (11)
  1. BENDAMUSTINE HYDROCHLORIDE. [Suspect]
     Active Substance: BENDAMUSTINE HYDROCHLORIDE
     Dosage: (2ND CYCLE)
     Route: 042
  2. RITUXIMAB [Concomitant]
     Active Substance: RITUXIMAB
     Dosage: (MONOTHERAPY)
     Route: 041
  3. BENDAMUSTINE HYDROCHLORIDE. [Suspect]
     Active Substance: BENDAMUSTINE HYDROCHLORIDE
     Indication: LYMPHOPLASMACYTOID LYMPHOMA/IMMUNOCYTOMA
     Dosage: (1ST CYCLE)
     Route: 042
  4. RITUXIMAB [Concomitant]
     Active Substance: RITUXIMAB
     Indication: LYMPHOPLASMACYTOID LYMPHOMA/IMMUNOCYTOMA
     Dosage: (1ST CYCLE)
     Route: 041
  5. RITUXIMAB [Concomitant]
     Active Substance: RITUXIMAB
     Dosage: CYCLIC (4 CYCLES)
     Route: 041
  6. RITUXIMAB [Concomitant]
     Active Substance: RITUXIMAB
     Dosage: CYCLIC (MONOTHERAPY)
     Route: 041
  7. RITUXIMAB [Concomitant]
     Active Substance: RITUXIMAB
     Dosage: (2ND CYCLE)
     Route: 041
  8. RITUXIMAB [Concomitant]
     Active Substance: RITUXIMAB
     Dosage: CYCLIC (R-CP)
     Route: 041
  9. ACICLOVIR [Concomitant]
     Active Substance: ACYCLOVIR
     Indication: PROPHYLAXIS
     Route: 065
  10. BENDAMUSTINE HYDROCHLORIDE. [Suspect]
     Active Substance: BENDAMUSTINE HYDROCHLORIDE
     Dosage: (4 CYCLES)
     Route: 042
  11. SULFAMETHOXAZOLE AND TRIMETHOPRIM [Concomitant]
     Active Substance: SULFAMETHOXAZOLE\TRIMETHOPRIM
     Indication: PROPHYLAXIS
     Route: 065

REACTIONS (9)
  - Neutropenia [Unknown]
  - Lymphoplasmacytoid lymphoma/immunocytoma [Unknown]
  - Constipation [Unknown]
  - Fatigue [Unknown]
  - Lymphopenia [Unknown]
  - Anaemia [Unknown]
  - Thrombocytopenia [Unknown]
  - Febrile neutropenia [Unknown]
  - Prescribed underdose [Unknown]
